FAERS Safety Report 7973765-X (Version None)
Quarter: 2011Q4

REPORT INFORMATION
  Report Type: 
  Country: None (occurrence: None)
  Receive Date: 20111213
  Receipt Date: 20111130
  Transmission Date: 20120403
  Serious: Yes (Hospitalization, Other)
  Sender: FDA-Public Use
  Company Number: PHHY2011BE100221

PATIENT
  Sex: Male

DRUGS (1)
  1. GILENYA [Suspect]
     Indication: RELAPSING-REMITTING MULTIPLE SCLEROSIS
     Dosage: 0.5 MG, DAILY
     Route: 048
     Dates: start: 20110809

REACTIONS (6)
  - GRAND MAL CONVULSION [None]
  - SOMNOLENCE [None]
  - MUSCLE RIGIDITY [None]
  - CONFUSIONAL STATE [None]
  - LOSS OF CONSCIOUSNESS [None]
  - CONVULSION [None]
